FAERS Safety Report 4463928-2 (Version None)
Quarter: 2004Q3

REPORT INFORMATION
  Report Type: 
  Country: None (occurrence: None)
  Receive Date: 20040929
  Receipt Date: 20040916
  Transmission Date: 20050211
  Serious: Yes (Hospitalization)
  Sender: FDA-Public Use
  Company Number: 040917-0000417

PATIENT
  Sex: Female

DRUGS (1)
  1. TRANXENE [Suspect]
     Indication: ANXIETY
     Dosage: PO
     Route: 048

REACTIONS (4)
  - DIALYSIS [None]
  - DRUG EXPOSURE DURING PREGNANCY [None]
  - OVERDOSE [None]
  - SOMNOLENCE [None]
